FAERS Safety Report 7955365-0 (Version None)
Quarter: 2011Q4

REPORT INFORMATION
  Report Type: 
  Country: None (occurrence: None)
  Receive Date: 20111202
  Receipt Date: 20111125
  Transmission Date: 20120403
  Serious: Yes (Other)
  Sender: FDA-Public Use
  Company Number: FR-US-EMD SERONO, INC.-7086732

PATIENT
  Sex: Male
  Weight: 65 kg

DRUGS (4)
  1. CETUXIMAB [Suspect]
     Indication: HEAD AND NECK CANCER
     Route: 042
     Dates: start: 20110414, end: 20110923
  2. IMO-2055 [Suspect]
     Indication: HEAD AND NECK CANCER
     Route: 058
     Dates: start: 20110715, end: 20110923
  3. FOSINOPRIL SODIUM AND HYDROCHLOROTHIAZIDE [Concomitant]
     Indication: HYPERTENSION
     Route: 048
     Dates: start: 19980101
  4. CLOPIDOGREL [Concomitant]
     Indication: CEREBROVASCULAR ACCIDENT
     Dates: start: 20000101, end: 20110702

REACTIONS (1)
  - THROMBOSIS [None]
